FAERS Safety Report 5138123-4 (Version None)
Quarter: 2006Q4

REPORT INFORMATION
  Report Type: 
  Country: None (occurrence: None)
  Receive Date: 20061030
  Receipt Date: 20060418
  Transmission Date: 20070319
  Serious: No
  Sender: FDA-Public Use
  Company Number: US-GLAXOSMITHKLINE-A0602189A

PATIENT
  Age: 69 Year
  Sex: Male

DRUGS (11)
  1. ADVAIR HFA [Suspect]
     Indication: CHRONIC OBSTRUCTIVE PULMONARY DISEASE
     Dosage: 250MCG TWICE PER DAY
     Route: 055
     Dates: start: 20040101
  2. FLOVENT [Concomitant]
  3. DUONEB [Concomitant]
  4. SEREVENT [Concomitant]
  5. THEO [Concomitant]
  6. SINGULAIR [Concomitant]
  7. NORVASK [Concomitant]
  8. PEPCID [Concomitant]
  9. PRANDIN [Concomitant]
  10. LASIX [Concomitant]
  11. FOSAMAX [Concomitant]

REACTIONS (1)
  - DRUG INEFFECTIVE [None]
